FAERS Safety Report 15005176 (Version 1)
Quarter: 2018Q2

REPORT INFORMATION
  Report Type: Spontaneous
  Country: ZA (occurrence: ZA)
  Receive Date: 20180613
  Receipt Date: 20180613
  Transmission Date: 20180711
  Serious: Yes (Death)
  Sender: FDA-Public Use
  Company Number: ZA-PFIZER INC-2018236524

PATIENT
  Age: 69 Year
  Sex: Male

DRUGS (8)
  1. VESICARE [Suspect]
     Active Substance: SOLIFENACIN SUCCINATE
     Dosage: UNK
  2. DONECEPT [Suspect]
     Active Substance: DONEPEZIL HYDROCHLORIDE
     Dosage: UNK
  3. DUROGESIC [Suspect]
     Active Substance: FENTANYL
     Dosage: UNK
  4. ADCO-SIMVASTATIN [Suspect]
     Active Substance: SIMVASTATIN
     Dosage: UNK
  5. XALATAN [Suspect]
     Active Substance: LATANOPROST
     Dosage: UNK
  6. CARDICOR [Suspect]
     Active Substance: BISOPROLOL
     Dosage: UNK
  7. TRAMACET [Suspect]
     Active Substance: ACETAMINOPHEN\TRAMADOL
     Dosage: UNK
  8. ECOTRIN [Suspect]
     Active Substance: ASPIRIN
     Dosage: UNK

REACTIONS (1)
  - Death [Fatal]
